FAERS Safety Report 8881694 (Version 1)
Quarter: 2012Q4

REPORT INFORMATION
  Report Type: 
  Country: US (occurrence: US)
  Receive Date: 20121101
  Receipt Date: 20121101
  Transmission Date: 20130627
  Serious: No
  Sender: FDA-Public Use
  Company Number: US-PFIZER INC-2012272737

PATIENT
  Age: 61 Year
  Sex: Female
  Weight: 49.89 kg

DRUGS (2)
  1. SERTRALINE HCL [Suspect]
     Indication: DEPRESSION
     Dosage: 50 mg, daily
     Dates: start: 20121027, end: 20121030
  2. AMBIEN [Concomitant]
     Indication: INSOMNIA
     Dosage: 10 mg, daily
     Route: 048

REACTIONS (1)
  - Muscle twitching [Not Recovered/Not Resolved]
